FAERS Safety Report 20946393 (Version 1)
Quarter: 2022Q2

REPORT INFORMATION
  Report Type: Spontaneous
  Country: CN (occurrence: CN)
  Receive Date: 20220610
  Receipt Date: 20220610
  Transmission Date: 20220720
  Serious: Yes (Death, Other)
  Sender: FDA-Public Use
  Company Number: CN-BAYER-2022A081591

PATIENT
  Age: 64 Year
  Sex: Male

DRUGS (6)
  1. MOXIFLOXACIN [Suspect]
     Active Substance: MOXIFLOXACIN
     Indication: Pneumonia
     Dosage: UNK
     Dates: start: 20201226, end: 20210104
  2. MOXIFLOXACIN [Suspect]
     Active Substance: MOXIFLOXACIN
     Indication: Pneumonia
     Dosage: UNK
     Dates: start: 20201218, end: 20201225
  3. IMIPENEM [Concomitant]
     Active Substance: IMIPENEM
     Dosage: UNK
     Dates: start: 20201226
  4. CILASTATIN SODIUM [Concomitant]
     Active Substance: CILASTATIN SODIUM
     Dosage: UNK
     Dates: start: 20201226
  5. GANCICLOVIR [Concomitant]
     Active Substance: GANCICLOVIR
     Dosage: UNK
     Dates: start: 20201227
  6. METHYLPREDNISOLONE [Concomitant]
     Active Substance: METHYLPREDNISOLONE
     Dosage: UNK
     Dates: start: 20201228

REACTIONS (3)
  - Multiple organ dysfunction syndrome [Fatal]
  - Renal impairment [None]
  - Hepatic function abnormal [None]

NARRATIVE: CASE EVENT DATE: 20210106
